FAERS Safety Report 10269096 (Version 1)
Quarter: 2014Q2

REPORT INFORMATION
  Report Type: Spontaneous
  Country: FR (occurrence: FR)
  Receive Date: 20140630
  Receipt Date: 20140630
  Transmission Date: 20141212
  Serious: Yes (Hospitalization)
  Sender: FDA-Public Use
  Company Number: FR-BAXTER-2014BAX034040

PATIENT
  Age: 65 Year
  Sex: Female

DRUGS (12)
  1. ENDOXAN 1000 MG, POUDRE POUR SOLUTION INJECTABLE [Suspect]
     Indication: NON-HODGKIN^S LYMPHOMA
     Dosage: ONE INTAKE
     Route: 042
     Dates: start: 20140530, end: 20140530
  2. UROMITEXAN 400MG/4ML SOLUTION FOR INJECTION [Suspect]
     Indication: NON-HODGKIN^S LYMPHOMA
     Route: 042
     Dates: start: 20140530, end: 20140530
  3. VINCRISTINE [Suspect]
     Indication: NON-HODGKIN^S LYMPHOMA
     Dosage: ONE INTAKE
     Route: 042
     Dates: start: 20140530, end: 20140530
  4. METHOTREXATE BIODIM [Suspect]
     Indication: NON-HODGKIN^S LYMPHOMA
     Dosage: ONE INTAKE
     Route: 037
     Dates: start: 20140530, end: 20140530
  5. DOXORUBICINE [Suspect]
     Indication: NON-HODGKIN^S LYMPHOMA
     Route: 042
     Dates: start: 20140530, end: 20140530
  6. CEFTRIAXONE PANPHARMA [Suspect]
     Indication: NON-HODGKIN^S LYMPHOMA
     Route: 042
     Dates: start: 20140530, end: 20140602
  7. CYTARABINE EBEWE [Suspect]
     Indication: NON-HODGKIN^S LYMPHOMA
     Route: 037
     Dates: start: 20140530, end: 20140530
  8. MABTHERA [Suspect]
     Indication: NON-HODGKIN^S LYMPHOMA
     Dosage: ONE INTAKE
     Route: 042
     Dates: start: 20140530, end: 20140530
  9. TAHOR [Concomitant]
     Indication: PRODUCT USED FOR UNKNOWN INDICATION
     Route: 065
  10. SINGULAIR [Concomitant]
     Indication: PRODUCT USED FOR UNKNOWN INDICATION
     Route: 065
  11. CETRIZINE [Concomitant]
     Indication: PRODUCT USED FOR UNKNOWN INDICATION
     Route: 065
  12. TAZOCILLINE [Concomitant]
     Indication: PRODUCT USED FOR UNKNOWN INDICATION
     Route: 065

REACTIONS (2)
  - Status epilepticus [Recovered/Resolved]
  - Hypernatraemia [None]
